APPROVED DRUG PRODUCT: RANITIDINE HYDROCHLORIDE
Active Ingredient: RANITIDINE HYDROCHLORIDE
Strength: EQ 25MG BASE/ML
Dosage Form/Route: INJECTABLE;INJECTION
Application: A091534 | Product #001
Applicant: ZYDUS PHARMACEUTICALS USA INC
Approved: Feb 22, 2013 | RLD: No | RS: No | Type: DISCN